FAERS Safety Report 23112841 (Version 1)
Quarter: 2023Q4

REPORT INFORMATION
  Report Type: Spontaneous
  Country: US (occurrence: None)
  Receive Date: 20231027
  Receipt Date: 20231027
  Transmission Date: 20240110
  Serious: Yes (Other)
  Sender: FDA-Public Use
  Company Number: US-ENDO-CASE-0034836

PATIENT
  Sex: Female

DRUGS (1)
  1. RANITIDINE HYDROCHLORIDE [Suspect]
     Active Substance: RANITIDINE HYDROCHLORIDE

REACTIONS (8)
  - Colitis ulcerative [Unknown]
  - Fatigue [Unknown]
  - Diarrhoea [Unknown]
  - Non-alcoholic fatty liver [Unknown]
  - Anaemia [Unknown]
  - Renal impairment [Unknown]
  - Nausea [Unknown]
  - Abdominal discomfort [Unknown]
